FAERS Safety Report 7729422-8 (Version None)
Quarter: 2011Q3

REPORT INFORMATION
  Report Type: 
  Country: None (occurrence: None)
  Receive Date: 20110831
  Receipt Date: 20110831
  Transmission Date: 20111222
  Serious: Yes (Death, Hospitalization)
  Sender: FDA-Public Use
  Company Number: None

PATIENT
  Sex: Female
  Weight: 69.9 kg

DRUGS (3)
  1. CARBOPLATIN [Suspect]
     Dosage: 792 MG
     Dates: end: 20110810
  2. TAXOTERE [Suspect]
     Dosage: 130 MG
     Dates: end: 20110810
  3. HERCEPTIN [Suspect]
     Dosage: 140 MG
     Dates: end: 20110810

REACTIONS (6)
  - URINARY TRACT INFECTION [None]
  - TREATMENT FAILURE [None]
  - SURGICAL FAILURE [None]
  - ABSCESS [None]
  - SEPSIS [None]
  - INFECTIOUS PERITONITIS [None]
